FAERS Safety Report 12296972 (Version 1)
Quarter: 2016Q2

REPORT INFORMATION
  Report Type: Report from Study
  Country: KR (occurrence: KR)
  Receive Date: 20160422
  Receipt Date: 20160422
  Transmission Date: 20160815
  Serious: Yes (Hospitalization)
  Sender: FDA-Public Use
  Company Number: KR-REGENERON PHARMACEUTICALS, INC.-2016-15895

PATIENT

DRUGS (6)
  1. EYLEA [Suspect]
     Active Substance: AFLIBERCEPT
     Indication: AGE-RELATED MACULAR DEGENERATION
     Dosage: 2 MG, UNK
     Route: 031
     Dates: start: 20140709, end: 20140709
  2. EYLEA [Suspect]
     Active Substance: AFLIBERCEPT
     Dosage: 2 MG, 9TH INJECTION
     Route: 031
     Dates: start: 201510, end: 201510
  3. EYLEA [Suspect]
     Active Substance: AFLIBERCEPT
     Dosage: 6TH INJECTION
     Route: 031
     Dates: start: 201501, end: 201501
  4. EYLEA [Suspect]
     Active Substance: AFLIBERCEPT
     Dosage: 2 MG
     Route: 031
     Dates: start: 20150422, end: 20150422
  5. EYLEA [Suspect]
     Active Substance: AFLIBERCEPT
     Dosage: 2 MG
     Route: 031
     Dates: start: 20140904, end: 20140904
  6. EYLEA [Suspect]
     Active Substance: AFLIBERCEPT
     Dosage: 2 MG
     Route: 031
     Dates: start: 20141105, end: 20141105

REACTIONS (6)
  - Vision blurred [Unknown]
  - Drug ineffective [Not Recovered/Not Resolved]
  - Fat tissue increased [Unknown]
  - Blood glucose increased [Unknown]
  - Thermal burn [Unknown]
  - Hypertension [Unknown]
